FAERS Safety Report 13781914 (Version 1)
Quarter: 2017Q3

REPORT INFORMATION
  Report Type: Spontaneous
  Country: JP (occurrence: JP)
  Receive Date: 20170724
  Receipt Date: 20170724
  Transmission Date: 20171127
  Serious: Yes (Other)
  Sender: FDA-Public Use
  Company Number: JP-009507513-1707JPN000979J

PATIENT
  Age: 93 Year
  Sex: Female

DRUGS (3)
  1. BELSOMRA [Suspect]
     Active Substance: SUVOREXANT
     Dosage: UNK
     Route: 048
     Dates: start: 20170308
  2. DEPAS [Concomitant]
     Active Substance: ETIZOLAM
     Dosage: UNK
     Route: 065
     Dates: start: 20170511
  3. WINTERMIN [Concomitant]
     Active Substance: PROMAZINE
     Dosage: 0.8 MG, ONCE EVERY 3 TO 4 DAYS
     Route: 048

REACTIONS (2)
  - Insomnia [Recovered/Resolved]
  - Delirium [Unknown]

NARRATIVE: CASE EVENT DATE: 2017
